FAERS Safety Report 8806397 (Version 2)
Quarter: 2012Q4

REPORT INFORMATION
  Report Type: 
  Country: US (occurrence: US)
  Receive Date: 20120925
  Receipt Date: 20121126
  Transmission Date: 20130627
  Serious: Yes (Hospitalization)
  Sender: FDA-Public Use
  Company Number: US-BAYER-2012-098211

PATIENT
  Sex: Female

DRUGS (8)
  1. YAZ [Suspect]
  2. YASMIN [Suspect]
  3. OCELLA [Suspect]
  4. TAMIFLU [Concomitant]
     Dosage: UNK
     Route: 048
     Dates: start: 20060519
  5. TYLENOL [Concomitant]
     Dosage: UNK;PRN
     Dates: start: 20060526
  6. TYLENOL [Concomitant]
  7. MOTRIN [Concomitant]
     Dosage: UNK;PRN
     Dates: start: 20060526
  8. LIPITOR [Concomitant]

REACTIONS (2)
  - Deep vein thrombosis [None]
  - Injury [None]
